FAERS Safety Report 20663246 (Version 1)
Quarter: 2022Q2

REPORT INFORMATION
  Report Type: Spontaneous
  Country: US (occurrence: None)
  Receive Date: 20220401
  Receipt Date: 20220401
  Transmission Date: 20220721
  Serious: No
  Sender: FDA-Public Use
  Company Number: None

PATIENT
  Age: 54 Year
  Sex: Female

DRUGS (1)
  1. HUMIRA [Suspect]
     Active Substance: ADALIMUMAB
     Indication: Psoriasis
     Dosage: FREQUENCY : EVERY OTHER WEEK;?
     Route: 058
     Dates: start: 202112

REACTIONS (7)
  - Psoriasis [None]
  - Therapy interrupted [None]
  - Seasonal allergy [None]
  - Nasal congestion [None]
  - Nasopharyngitis [None]
  - Polycythaemia [None]
  - Glucose tolerance impaired [None]
